FAERS Safety Report 5058995-1 (Version None)
Quarter: 2006Q3

REPORT INFORMATION
  Report Type: 
  Country: None (occurrence: None)
  Receive Date: 20060719
  Receipt Date: 20060710
  Transmission Date: 20061208
  Serious: Yes (Death, Hospitalization)
  Sender: FDA-Public Use
  Company Number: CLOF-10281

PATIENT
  Age: 71 Year
  Sex: Male

DRUGS (13)
  1. CLOFARABINE [Suspect]
     Indication: MYELOID LEUKAEMIA
     Dosage: 81.2 MG, QD
     Dates: start: 20060630, end: 20060630
  2. SPIRIVA [Concomitant]
  3. ACYCLOVIR [Concomitant]
  4. ZOFRAN [Concomitant]
  5. MAGNESIUM SULFATE [Concomitant]
  6. POTASSIUM PHOSPHATES [Concomitant]
  7. DILANTIN [Concomitant]
  8. ALLOPURINOL [Concomitant]
  9. BENADRYL [Concomitant]
  10. LASIX [Concomitant]
  11. LEXAPRO [Concomitant]
  12. XOPENIX [Concomitant]
  13. ATIVAN [Concomitant]

REACTIONS (2)
  - DISEASE PROGRESSION [None]
  - RESPIRATORY DISTRESS [None]
